FAERS Safety Report 23493363 (Version 1)
Quarter: 2024Q1

REPORT INFORMATION
  Report Type: Spontaneous
  Country: US (occurrence: US)
  Receive Date: 20240207
  Receipt Date: 20240207
  Transmission Date: 20240410
  Serious: Yes (Hospitalization)
  Sender: FDA-Public Use
  Company Number: US-MYLANLABS-2024M1011521

PATIENT
  Age: 21 Year
  Sex: Male

DRUGS (9)
  1. MYCOPHENOLATE MOFETIL [Suspect]
     Active Substance: MYCOPHENOLATE MOFETIL
     Indication: Immunosuppressant drug therapy
     Dosage: 500 MILLIGRAM, BID
     Route: 065
  2. MYCOPHENOLATE MOFETIL [Suspect]
     Active Substance: MYCOPHENOLATE MOFETIL
     Dosage: 250 MILLIGRAM, QD
     Route: 065
  3. TACROLIMUS [Interacting]
     Active Substance: TACROLIMUS
     Indication: Immunosuppressant drug therapy
     Dosage: 1.5 MILLIGRAM, BID
     Route: 065
  4. TACROLIMUS [Interacting]
     Active Substance: TACROLIMUS
     Dosage: 0.5 MILLIGRAM, QOD
     Route: 065
  5. PREDNISONE [Suspect]
     Active Substance: PREDNISONE
     Indication: Immunosuppressant drug therapy
     Dosage: 30 MILLIGRAM, BID
     Route: 065
  6. PREDNISONE [Suspect]
     Active Substance: PREDNISONE
     Dosage: 2.5 MILLIGRAM, QD
     Route: 065
  7. FLUCONAZOLE [Interacting]
     Active Substance: FLUCONAZOLE
     Indication: Disseminated cryptococcosis
     Dosage: 800 MILLIGRAM, QD,12?MG/KG
     Route: 048
  8. VORICONAZOLE [Suspect]
     Active Substance: VORICONAZOLE
     Indication: Disseminated cryptococcosis
     Dosage: UNK
     Route: 065
  9. LAPINE T-LYMPHOCYTE IMMUNE GLOBULIN [Suspect]
     Active Substance: LAPINE T-LYMPHOCYTE IMMUNE GLOBULIN
     Indication: Immunosuppressant drug therapy
     Dosage: 6 MILLIGRAM/KILOGRAM
     Route: 065

REACTIONS (11)
  - Disseminated cryptococcosis [Recovered/Resolved]
  - Intracranial pressure increased [Recovered/Resolved]
  - Labelled drug-drug interaction medication error [Unknown]
  - Gastrointestinal disorder [Unknown]
  - Fungal myositis [Unknown]
  - Hypercalcaemia [Recovered/Resolved]
  - Cryptococcal cutaneous infection [Recovered/Resolved]
  - Infection [Recovered/Resolved]
  - Myocarditis mycotic [Recovered/Resolved]
  - Periostitis [Recovered/Resolved]
  - Drug ineffective [Unknown]
